FAERS Safety Report 5291922-0 (Version None)
Quarter: 2007Q2

REPORT INFORMATION
  Report Type: 
  Country: None (occurrence: None)
  Receive Date: 20070403
  Receipt Date: 20070322
  Transmission Date: 20071010
  Serious: Yes (Other)
  Sender: FDA-Public Use
  Company Number: 230008M07ESP

PATIENT
  Age: 41 Year
  Sex: Female

DRUGS (1)
  1. REBIF [Suspect]
     Dosage: 22 MCG, 3 IN 1 WEEKS, SUBCUTANEUOUS
     Route: 058
     Dates: start: 19970501, end: 19970801

REACTIONS (2)
  - NERVOUSNESS [None]
  - WEIGHT DECREASED [None]
